FAERS Safety Report 5311602-2 (Version None)
Quarter: 2007Q1

REPORT INFORMATION
  Report Type: 
  Country: None (occurrence: None)
  Receive Date: 20070201
  Receipt Date: 20061215
  Transmission Date: 20070707
  Serious: No
  Sender: FDA-Public Use
  Company Number: 259589

PATIENT
  Age: 86 Year
  Sex: Female
  Weight: 63.5 kg

DRUGS (8)
  1. LEVEMIR [Suspect]
     Indication: INSULIN-REQUIRING TYPE II DIABETES MELLITUS
     Dosage: 20 IU, QD, SUBCUTANEOUS
     Route: 058
     Dates: start: 20060925
  2. FOLIC ACID [Concomitant]
  3. NORMOTIN (ADONIS VERNALIS EXTRACT, CAMPHOR, CONVALLARIA MAJALIS TINCTU [Concomitant]
  4. LISIPRIL (LISINOPRIL) [Concomitant]
  5. OMEPRAZOLE [Concomitant]
  6. LEVOTHYROXINE SODIUM [Concomitant]
  7. PLAVIX [Concomitant]
  8. RENAGEL /01459901/ (SEVELAMER) [Concomitant]

REACTIONS (1)
  - NAUSEA [None]
